FAERS Safety Report 15622199 (Version 2)
Quarter: 2019Q1

REPORT INFORMATION
  Report Type: Spontaneous
  Country: US (occurrence: US)
  Receive Date: 20181115
  Receipt Date: 20190205
  Transmission Date: 20190417
  Serious: Yes (Hospitalization, Other)
  Sender: FDA-Public Use
  Company Number: US-009507513-1811USA002493

PATIENT
  Age: 48 Year
  Sex: Male

DRUGS (1)
  1. STEGLATRO [Suspect]
     Active Substance: ERTUGLIFLOZIN PIDOLATE
     Dosage: UNK
     Route: 048

REACTIONS (2)
  - Dehydration [Recovered/Resolved]
  - Renal impairment [Recovered/Resolved]
